FAERS Safety Report 8879684 (Version 2)
Quarter: 2012Q4

REPORT INFORMATION
  Report Type: 
  Country: JP (occurrence: JP)
  Receive Date: 20121031
  Receipt Date: 20121105
  Transmission Date: 20130627
  Serious: Yes (Other)
  Sender: FDA-Public Use
  Company Number: JP-GLAXOSMITHKLINE-B0840590A

PATIENT
  Age: 60 Year
  Sex: Male

DRUGS (3)
  1. SAMTIREL [Suspect]
     Indication: ANTIFUNGAL PROPHYLAXIS
     Dosage: 750MG Per day
     Route: 048
     Dates: start: 20120813
  2. BAYASPIRIN [Concomitant]
     Dosage: 1IUAX Per day
     Route: 048
     Dates: start: 2006
  3. CEROCRAL [Concomitant]
     Dosage: 20MG Twice per day
     Route: 048
     Dates: start: 2006

REACTIONS (1)
  - Myocardial infarction [Recovered/Resolved]
